FAERS Safety Report 10015876 (Version 1)
Quarter: 2014Q1

REPORT INFORMATION
  Report Type: Spontaneous
  Country: JP (occurrence: JP)
  Receive Date: 20140317
  Receipt Date: 20140317
  Transmission Date: 20141002
  Serious: Yes (Hospitalization)
  Sender: FDA-Public Use
  Company Number: JP-JNJFOC-20140302177

PATIENT
  Age: 73 Year
  Sex: Female
  Weight: 49.4 kg

DRUGS (15)
  1. RISPERDAL [Suspect]
     Indication: SCHIZOPHRENIA SIMPLE
     Route: 048
     Dates: start: 20040130
  2. AXITINIB [Suspect]
     Indication: CLEAR CELL RENAL CELL CARCINOMA
     Route: 048
     Dates: start: 20130625, end: 20130627
  3. AXITINIB [Suspect]
     Indication: CLEAR CELL RENAL CELL CARCINOMA
     Route: 048
     Dates: start: 20130724
  4. AXITINIB [Suspect]
     Indication: CLEAR CELL RENAL CELL CARCINOMA
     Route: 048
     Dates: start: 20130919, end: 20130919
  5. CARVEDILOL [Suspect]
     Indication: STRESS CARDIOMYOPATHY
     Route: 048
     Dates: start: 20130927
  6. CARVEDILOL [Suspect]
     Indication: STRESS CARDIOMYOPATHY
     Route: 048
     Dates: start: 20131024, end: 20131101
  7. CARVEDILOL [Suspect]
     Indication: STRESS CARDIOMYOPATHY
     Route: 048
     Dates: start: 20130920, end: 20130922
  8. CELECOXIB [Suspect]
     Indication: BACK PAIN
     Route: 048
     Dates: start: 20130528, end: 20130920
  9. RILMAZAFONE HYDROCHLORIDE [Concomitant]
     Indication: INSOMNIA
     Dates: start: 20040130
  10. TSUMARA RIKKUNSHITO EXTRACT GRANULES [Concomitant]
     Indication: NEUROSIS
     Route: 048
     Dates: start: 20090515
  11. ALENDRONATE SODIUM [Concomitant]
     Indication: OSTEOPOROSIS
     Route: 048
     Dates: start: 20130528
  12. ELDECALCITOL [Concomitant]
     Indication: OSTEOPOROSIS
     Route: 048
     Dates: start: 20130528, end: 20131001
  13. OLMESARTAN MEDOXOMIL [Concomitant]
     Indication: HYPERTENSION
     Route: 048
     Dates: start: 20101224
  14. AZELNIDIPINE [Concomitant]
     Indication: HYPERTENSION
     Dates: start: 20101224
  15. TRICHLORMETHIAZIDE [Concomitant]
     Indication: HYPERTENSION
     Route: 048
     Dates: start: 20130626

REACTIONS (5)
  - Stress cardiomyopathy [Recovering/Resolving]
  - Rhabdomyolysis [Recovered/Resolved with Sequelae]
  - Torsade de pointes [Not Recovered/Not Resolved]
  - Myoglobinuria [Recovered/Resolved]
  - Diarrhoea [Unknown]
